FAERS Safety Report 13962513 (Version 3)
Quarter: 2018Q1

REPORT INFORMATION
  Report Type: Spontaneous
  Country: US (occurrence: US)
  Receive Date: 20170913
  Receipt Date: 20180131
  Transmission Date: 20180508
  Serious: Yes (Death, Other)
  Sender: FDA-Public Use
  Company Number: PHEH2017US029376

PATIENT
  Sex: Female
  Weight: 49.6 kg

DRUGS (1)
  1. EXJADE [Suspect]
     Active Substance: DEFERASIROX
     Indication: MYELODYSPLASTIC SYNDROME
     Dosage: 1500 MG, QD
     Route: 048
     Dates: start: 20161130, end: 20170730

REACTIONS (4)
  - Malignant neoplasm progression [Fatal]
  - Gastrointestinal haemorrhage [Unknown]
  - Blood electrolytes decreased [Unknown]
  - Myelodysplastic syndrome [Fatal]
